FAERS Safety Report 12939332 (Version 1)
Quarter: 2016Q4

REPORT INFORMATION
  Report Type: Report from Study
  Country: US (occurrence: US)
  Receive Date: 20161115
  Receipt Date: 20161115
  Transmission Date: 20170207
  Serious: Yes (Hospitalization, Other)
  Sender: FDA-Public Use
  Company Number: PHEH2014US016600

PATIENT
  Age: 6 Year
  Sex: Female

DRUGS (7)
  1. AFINITOR [Suspect]
     Active Substance: EVEROLIMUS
     Indication: ASTROCYTOMA, LOW GRADE
     Dosage: UNK
     Route: 048
     Dates: start: 20140703, end: 20140724
  2. AFINITOR [Suspect]
     Active Substance: EVEROLIMUS
     Dosage: UNK, QD
     Route: 048
     Dates: start: 20141009, end: 20141023
  3. LAMICTAL [Concomitant]
     Active Substance: LAMOTRIGINE
     Indication: PRODUCT USED FOR UNKNOWN INDICATION
     Route: 065
  4. AFINITOR [Suspect]
     Active Substance: EVEROLIMUS
     Dosage: 5 MG, ALTERNATING WITH 3 MG EVERY OTHER DAY
     Route: 048
     Dates: start: 20150325
  5. ONFI [Concomitant]
     Active Substance: CLOBAZAM
     Indication: PRODUCT USED FOR UNKNOWN INDICATION
     Route: 065
  6. CLONAZEPAM. [Concomitant]
     Active Substance: CLONAZEPAM
     Indication: PRODUCT USED FOR UNKNOWN INDICATION
     Route: 065
  7. BANZIL [Concomitant]
     Active Substance: UREA
     Indication: PRODUCT USED FOR UNKNOWN INDICATION
     Route: 065

REACTIONS (5)
  - Seizure [Unknown]
  - Epistaxis [Unknown]
  - Stomatitis [Not Recovered/Not Resolved]
  - Drug level increased [Not Recovered/Not Resolved]
  - Blood alkaline phosphatase increased [Not Recovered/Not Resolved]

NARRATIVE: CASE EVENT DATE: 20140724
